FAERS Safety Report 9047813 (Version 1)
Quarter: 2013Q1

REPORT INFORMATION
  Report Type: Spontaneous
  Country: US (occurrence: US)
  Receive Date: 20130204
  Receipt Date: 20130204
  Transmission Date: 20140127
  Serious: No
  Sender: FDA-Public Use
  Company Number: US-AMGEN-USASP2013003494

PATIENT
  Age: 65 Year
  Sex: Female

DRUGS (2)
  1. ENBREL [Suspect]
     Indication: RHEUMATOID ARTHRITIS
     Dosage: 50 MG, 2 TIMES/WK
     Dates: start: 201210, end: 201210
  2. PREDNISONE [Concomitant]
     Dosage: UNK

REACTIONS (2)
  - Rash generalised [Not Recovered/Not Resolved]
  - Nodule [Not Recovered/Not Resolved]
